FAERS Safety Report 5568719-7 (Version None)
Quarter: 2007Q4

REPORT INFORMATION
  Report Type: 
  Country: None (occurrence: None)
  Receive Date: 20071220
  Receipt Date: 20061129
  Transmission Date: 20080405
  Serious: No
  Sender: FDA-Public Use
  Company Number: A0629442A

PATIENT
  Age: 80 Year
  Sex: Male

DRUGS (10)
  1. AVODART [Suspect]
     Indication: BENIGN PROSTATIC HYPERPLASIA
     Dosage: .5MG PER DAY
     Route: 048
     Dates: start: 20060101
  2. ATENOLOL [Concomitant]
  3. FELODIPINE [Concomitant]
  4. ZOCOR [Concomitant]
  5. LISINOPRIL [Concomitant]
  6. TERAZOSIN HCL [Concomitant]
  7. ASPIRIN [Concomitant]
  8. VITAMIN E [Concomitant]
  9. FISH OIL [Concomitant]
  10. CALCIUM [Concomitant]

REACTIONS (1)
  - TESTICULAR PAIN [None]
